FAERS Safety Report 12073403 (Version 1)
Quarter: 2016Q1

REPORT INFORMATION
  Report Type: Spontaneous
  Country: US (occurrence: US)
  Receive Date: 20160212
  Receipt Date: 20160212
  Transmission Date: 20160526
  Serious: Yes (Hospitalization)
  Sender: FDA-Public Use
  Company Number: US-JNJFOC-20160207508

PATIENT
  Age: 22 Year
  Sex: Male
  Weight: 86.18 kg

DRUGS (2)
  1. RISPERDAL [Suspect]
     Active Substance: RISPERIDONE
     Indication: SCHIZOPHRENIA
     Route: 048
  2. RISPERDAL CONSTA [Suspect]
     Active Substance: RISPERIDONE
     Indication: SCHIZOPHRENIA
     Route: 030

REACTIONS (10)
  - Homicidal ideation [Unknown]
  - Treatment noncompliance [Unknown]
  - Depression [Unknown]
  - Incorrect dose administered [Unknown]
  - Off label use [Unknown]
  - Hallucination, auditory [Unknown]
  - Suicidal ideation [Unknown]
  - Posturing [Recovered/Resolved]
  - Aggression [Recovered/Resolved]
  - Judgement impaired [Unknown]

NARRATIVE: CASE EVENT DATE: 201510
